FAERS Safety Report 8001904-3 (Version None)
Quarter: 2011Q4

REPORT INFORMATION
  Report Type: 
  Country: None (occurrence: None)
  Receive Date: 20111219
  Receipt Date: 20111207
  Transmission Date: 20120403
  Serious: Yes (Disabling)
  Sender: FDA-Public Use
  Company Number: OSCN-NO-1112S-0239

PATIENT
  Age: 42 Year
  Sex: Male

DRUGS (1)
  1. OMNISCAN [Suspect]
     Indication: PRODUCT USED FOR UNKNOWN INDICATION
     Dosage: 15 ML, SINGLE DOSE, INTRAVENOUS
     Route: 042
     Dates: start: 20020101, end: 20020101

REACTIONS (1)
  - NEPHROGENIC SYSTEMIC FIBROSIS [None]
